FAERS Safety Report 11857311 (Version 2)
Quarter: 2017Q1

REPORT INFORMATION
  Report Type: Spontaneous
  Country: US (occurrence: US)
  Receive Date: 20151221
  Receipt Date: 20170315
  Transmission Date: 20170428
  Serious: Yes (Other)
  Sender: FDA-Public Use
  Company Number: US-ELI_LILLY_AND_COMPANY-US201512006183

PATIENT
  Sex: Female
  Weight: 118.37 kg

DRUGS (3)
  1. CYMBALTA [Suspect]
     Active Substance: DULOXETINE HYDROCHLORIDE
     Indication: ANXIETY
  2. CYMBALTA [Suspect]
     Active Substance: DULOXETINE HYDROCHLORIDE
     Indication: INSOMNIA
  3. CYMBALTA [Suspect]
     Active Substance: DULOXETINE HYDROCHLORIDE
     Indication: DEPRESSION
     Dosage: UNK, UNKNOWN
     Route: 065
     Dates: start: 2012

REACTIONS (22)
  - Dysphoria [Unknown]
  - Sensory disturbance [Unknown]
  - Agitation [Unknown]
  - Suicidal ideation [Unknown]
  - Nightmare [Unknown]
  - Vertigo [Unknown]
  - Nausea [Unknown]
  - Diarrhoea [Unknown]
  - Vomiting [Unknown]
  - Anxiety [Unknown]
  - Seizure [Unknown]
  - Confusional state [Unknown]
  - Paraesthesia [Unknown]
  - Headache [Unknown]
  - Dizziness [Unknown]
  - Tremor [Unknown]
  - Fatigue [Unknown]
  - Hyperhidrosis [Unknown]
  - Lethargy [Unknown]
  - Irritability [Unknown]
  - Insomnia [Unknown]
  - Drug withdrawal syndrome [Unknown]
